FAERS Safety Report 22258409 (Version 6)
Quarter: 2025Q4

REPORT INFORMATION
  Report Type: Spontaneous
  Country: US (occurrence: US)
  Receive Date: 20230427
  Receipt Date: 20251127
  Transmission Date: 20260118
  Serious: No
  Sender: BIOGEN
  Company Number: US-BIOGEN-2023BI01199970

PATIENT
  Age: 55 Year
  Sex: Female

DRUGS (5)
  1. VUMERITY [Suspect]
     Active Substance: DIROXIMEL FUMARATE
     Indication: Multiple sclerosis
     Dates: start: 20230501, end: 20230605
  2. VUMERITY [Suspect]
     Active Substance: DIROXIMEL FUMARATE
     Dates: start: 20230416
  3. VUMERITY [Suspect]
     Active Substance: DIROXIMEL FUMARATE
     Dates: start: 202305
  4. VUMERITY [Suspect]
     Active Substance: DIROXIMEL FUMARATE
  5. VUMERITY [Suspect]
     Active Substance: DIROXIMEL FUMARATE
     Dates: start: 20230416, end: 20230422

REACTIONS (12)
  - Visual impairment [Not Recovered/Not Resolved]
  - Flushing [Unknown]
  - Influenza like illness [Unknown]
  - Anxiety [Unknown]
  - Depression [Unknown]
  - Eye pain [Recovered/Resolved]
  - Headache [Not Recovered/Not Resolved]
  - Feeling hot [Not Recovered/Not Resolved]
  - Vision blurred [Not Recovered/Not Resolved]
  - Fatigue [Not Recovered/Not Resolved]
  - Onychomycosis [Unknown]
  - Genital infection bacterial [Unknown]

NARRATIVE: CASE EVENT DATE: 20230101
